FAERS Safety Report 20297148 (Version 1)
Quarter: 2022Q1

REPORT INFORMATION
  Report Type: Spontaneous
  Country: US (occurrence: US)
  Receive Date: 20220105
  Receipt Date: 20220105
  Transmission Date: 20220423
  Serious: Yes (Other)
  Sender: FDA-Public Use
  Company Number: US-ALKEM LABORATORIES LIMITED-US-ALKEM-2021-07047

PATIENT
  Sex: Male

DRUGS (9)
  1. IBUPROFEN [Suspect]
     Active Substance: IBUPROFEN
     Indication: Product used for unknown indication
     Dosage: UNK
     Route: 065
  2. TRIAMCINOLONE ACETONIDE [Suspect]
     Active Substance: TRIAMCINOLONE ACETONIDE
     Indication: Aspirin-exacerbated respiratory disease
     Dosage: 110 MICROGRAM, QD
     Route: 045
  3. CETIRIZINE HYDROCHLORIDE [Suspect]
     Active Substance: CETIRIZINE HYDROCHLORIDE
     Indication: Urticaria
     Dosage: 40 MILLIGRAM, QD
     Route: 065
  4. MONTELUKAST [Suspect]
     Active Substance: MONTELUKAST SODIUM
     Indication: Aspirin-exacerbated respiratory disease
     Dosage: 10 MILLIGRAM, QD
     Route: 065
  5. HYDROXYZINE [Suspect]
     Active Substance: HYDROXYZINE HYDROCHLORIDE
     Indication: Urticaria
     Dosage: 100 MILLIGRAM, QD
     Route: 065
  6. FORMOTEROL\MOMETASONE [Concomitant]
     Active Substance: FORMOTEROL\MOMETASONE
     Indication: Aspirin-exacerbated respiratory disease
     Dosage: 200 MILLIGRAM, QD
     Route: 055
  7. PREDNISONE [Concomitant]
     Active Substance: PREDNISONE
     Indication: Aspirin-exacerbated respiratory disease
     Dosage: 30 MILLIGRAM
     Route: 048
  8. ALBUTEROL [Concomitant]
     Active Substance: ALBUTEROL
     Indication: Aspirin-exacerbated respiratory disease
     Dosage: 2.5 MILLIGRAM, EVERY 4 HOUR
     Route: 055
  9. ALBUTEROL [Concomitant]
     Active Substance: ALBUTEROL
     Dosage: 90 MICROGRAM
     Route: 065

REACTIONS (2)
  - Aspirin-exacerbated respiratory disease [Recovered/Resolved]
  - Drug ineffective [Unknown]
